FAERS Safety Report 11242178 (Version 2)
Quarter: 2015Q3

REPORT INFORMATION
  Report Type: Report from Study
  Country: JP (occurrence: JP)
  Receive Date: 20150707
  Receipt Date: 20150709
  Transmission Date: 20151125
  Serious: Yes (Other)
  Sender: FDA-Public Use
  Company Number: JP-009507513-1507JPN002027

PATIENT

DRUGS (4)
  1. FLUOROURACIL. [Suspect]
     Active Substance: FLUOROURACIL
     Indication: CHOLANGIOCARCINOMA
     Dosage: 250MG/DAY, ON DAYS 1-5 OF EVERY WEEK (ONE CYCLE LASTED 4 WEEKS, AT LEAST MORE THAN 1 CYCLE)
     Route: 013
  2. PEGINTRON [Suspect]
     Active Substance: PEGINTERFERON ALFA-2B
     Dosage: 25UG FOR BODY WEIGHT {=50KG, 50UG FOR BODY WEIGHT }50KG), QW
     Route: 058
  3. FLUOROURACIL. [Suspect]
     Active Substance: FLUOROURACIL
     Dosage: 125MG/DAY, ON DAYS 1-5 OF EVERY WEEK (ONE CYCLE LASTED 4 WEEKS, AT LEAST MORE THAN 1 CYCLE)
     Route: 013
  4. PEGINTRON [Suspect]
     Active Substance: PEGINTERFERON ALFA-2B
     Indication: CHOLANGIOCARCINOMA
     Dosage: WEIGHT ADJUSTED (50UG FOR BODY WEIGHT {=50KG, 100UG FOR BODY WEIGHT }50KG), QW
     Route: 058

REACTIONS (1)
  - Thrombocytopenia [Unknown]
